FAERS Safety Report 6437784-7 (Version None)
Quarter: 2009Q4

REPORT INFORMATION
  Report Type: 
  Country: None (occurrence: None)
  Receive Date: 20091109
  Receipt Date: 20090408
  Transmission Date: 20100525
  Serious: Yes (Other)
  Sender: FDA-Public Use
  Company Number: 09-053

PATIENT
  Age: 59 Year
  Sex: Male

DRUGS (5)
  1. HYDROCODONE BITARTRATE AND ACETAMINOPHEN [Suspect]
     Indication: BACK PAIN
     Dosage: ONE QBID. ORAL
     Route: 048
     Dates: start: 20090321, end: 20090328
  2. CARISOPRODOL [Suspect]
     Indication: BACK PAIN
     Dosage: 350 MG QPM ORAL
     Route: 048
     Dates: start: 20090321, end: 20090328
  3. IBUPROFEN [Concomitant]
  4. LISINOPRIL [Concomitant]
  5. VYTORIN [Concomitant]

REACTIONS (1)
  - NO THERAPEUTIC RESPONSE [None]
